FAERS Safety Report 7927980-1 (Version None)
Quarter: 2011Q4

REPORT INFORMATION
  Report Type: 
  Country: None (occurrence: None)
  Receive Date: 20111118
  Receipt Date: 20111115
  Transmission Date: 20120403
  Serious: Yes (Other)
  Sender: FDA-Public Use
  Company Number: US-CEPHALON-2011005854

PATIENT
  Age: 29 Year
  Sex: Male

DRUGS (1)
  1. PROVIGIL [Suspect]
     Route: 048
     Dates: start: 20110101

REACTIONS (2)
  - DRUG ABUSE [None]
  - PSYCHOTIC DISORDER [None]
